FAERS Safety Report 6581127-5 (Version None)
Quarter: 2010Q1

REPORT INFORMATION
  Report Type: 
  Country: None (occurrence: None)
  Receive Date: 20100215
  Receipt Date: 20100212
  Transmission Date: 20100710
  Serious: Yes (Hospitalization)
  Sender: FDA-Public Use
  Company Number: PHHO2009IT04698

PATIENT
  Sex: Female
  Weight: 108.5 kg

DRUGS (6)
  1. PLACEBO PLACEBO [Suspect]
     Indication: GLUCOSE TOLERANCE IMPAIRED
     Dosage: LEVEL 1
     Route: 048
     Dates: start: 20021001, end: 20021015
  2. PLACEBO PLACEBO [Suspect]
     Dosage: LEVEL 2
     Route: 048
     Dates: start: 20021015, end: 20090318
  3. DIOVAN T30230+CAPS [Suspect]
     Indication: CARDIOVASCULAR DISORDER
     Dosage: LEVEL 1
     Dates: start: 20021001, end: 20021015
  4. DIOVAN T30230+CAPS [Suspect]
     Dosage: LEVEL 2
     Dates: start: 20021015, end: 20090318
  5. ZANEDIP [Concomitant]
     Indication: HYPERTENSION
     Dosage: UNK
  6. MINITRAN [Concomitant]
     Indication: ISCHAEMIC CARDIOMYOPATHY
     Dosage: UNK

REACTIONS (4)
  - ATRIAL FIBRILLATION [None]
  - CARDIAC ARREST [None]
  - HYPERTENSION [None]
  - PULMONARY OEDEMA [None]
